FAERS Safety Report 5934065-2 (Version None)
Quarter: 2008Q4

REPORT INFORMATION
  Report Type: 
  Country: None (occurrence: None)
  Receive Date: 20081029
  Receipt Date: 20081022
  Transmission Date: 20090506
  Serious: Yes (Other)
  Sender: FDA-Public Use
  Company Number: JP-BRISTOL-MYERS SQUIBB COMPANY-14382907

PATIENT

DRUGS (6)
  1. TAXOL [Suspect]
     Indication: BREAST CANCER
     Route: 041
  2. CYCLOPHOSPHAMIDE [Suspect]
     Indication: BREAST CANCER
     Dosage: (TWENTY-TWO: 75, 600 MG/M2, TEN: 90, 600 MG/M2)
  3. EPIRUBICIN [Suspect]
     Indication: BREAST CANCER
     Dosage: (TWENTY-TWO: 75, 600 MG/M2, TEN: 90, 600 MG/M2)
  4. DEXAMETHASONE SODIUM PHOSPHATE [Concomitant]
     Route: 042
  5. DIPHENHYDRAMINE HCL [Concomitant]
     Route: 048
  6. RANITIDINE HCL [Concomitant]
     Route: 042

REACTIONS (8)
  - ALANINE AMINOTRANSFERASE INCREASED [None]
  - ANAEMIA [None]
  - ASPARTATE AMINOTRANSFERASE INCREASED [None]
  - DRUG HYPERSENSITIVITY [None]
  - FEBRILE NEUTROPENIA [None]
  - HEPATIC FUNCTION ABNORMAL [None]
  - LEUKOPENIA [None]
  - NEUTROPENIA [None]
